FAERS Safety Report 25256471 (Version 1)
Quarter: 2025Q2

REPORT INFORMATION
  Report Type: Report from Study
  Country: US (occurrence: US)
  Receive Date: 20250430
  Receipt Date: 20250430
  Transmission Date: 20250716
  Serious: Yes (Other)
  Sender: ABBVIE
  Company Number: US-ABBVIE-6255198

PATIENT
  Sex: Male

DRUGS (1)
  1. HUMIRA [Suspect]
     Active Substance: ADALIMUMAB
     Indication: Colitis ulcerative
     Route: 058
     Dates: start: 20230908

REACTIONS (9)
  - Pyoderma gangrenosum [Unknown]
  - Gastrointestinal disorder [Unknown]
  - Surgery [Unknown]
  - Colitis ulcerative [Unknown]
  - Appendix disorder [Unknown]
  - Anorectal disorder [Unknown]
  - Ankylosing spondylitis [Unknown]
  - Gait inability [Unknown]
  - Illness [Unknown]
